FAERS Safety Report 7474529-6 (Version None)
Quarter: 2011Q2

REPORT INFORMATION
  Report Type: 
  Country: None (occurrence: None)
  Receive Date: 20110512
  Receipt Date: 20110503
  Transmission Date: 20111010
  Serious: Yes (Hospitalization)
  Sender: FDA-Public Use
  Company Number: US-BIOGENIDEC-2011BI014225

PATIENT
  Age: 53 Year
  Sex: Female

DRUGS (8)
  1. AVONEX [Suspect]
     Indication: MULTIPLE SCLEROSIS
     Route: 030
     Dates: start: 19970101, end: 20030101
  2. CELEXA [Concomitant]
     Dates: start: 20050101
  3. NEXIUM [Concomitant]
     Dates: start: 20050101
  4. AVONEX [Suspect]
     Route: 030
     Dates: start: 20030101
  5. PROVIGIL [Concomitant]
     Dates: start: 20050101
  6. SIMVASTATIN [Concomitant]
     Dates: start: 20050101
  7. LORAZEPAM [Concomitant]
     Dates: start: 20050101
  8. TRAMADOL HYDROCHLORIDE [Concomitant]
     Dates: start: 20050101

REACTIONS (5)
  - MULTIPLE SCLEROSIS RELAPSE [None]
  - SLEEP DISORDER [None]
  - HYPERTENSION [None]
  - VERTIGO [None]
  - BONE DISORDER [None]
